FAERS Safety Report 22338084 (Version 1)
Quarter: 2023Q2

REPORT INFORMATION
  Report Type: Spontaneous
  Country: US (occurrence: US)
  Receive Date: 20230518
  Receipt Date: 20230518
  Transmission Date: 20230722
  Serious: Yes (Other)
  Sender: FDA-Public Use
  Company Number: US-002147023-NVSC2023US113590

PATIENT
  Sex: Male

DRUGS (6)
  1. SIMBRINZA [Suspect]
     Active Substance: BRIMONIDINE TARTRATE\BRINZOLAMIDE
     Indication: Visual impairment
     Dosage: 1 DRP, EACH EYE, TID
     Route: 047
  2. SIMBRINZA [Suspect]
     Active Substance: BRIMONIDINE TARTRATE\BRINZOLAMIDE
     Indication: Intraocular pressure increased
  3. TIMOLOL [Suspect]
     Active Substance: TIMOLOL
     Indication: Visual impairment
     Dosage: 1 DRP, IN THE RIGHT EYE, BID
     Route: 047
  4. TIMOLOL [Suspect]
     Active Substance: TIMOLOL
     Indication: Intraocular pressure increased
  5. AVASTIN [Concomitant]
     Active Substance: BEVACIZUMAB
     Indication: Product used for unknown indication
     Dosage: UNK
     Route: 065
  6. TYLENOL [Concomitant]
     Active Substance: ACETAMINOPHEN
     Indication: Product used for unknown indication
     Dosage: UNK
     Route: 065

REACTIONS (5)
  - Blindness unilateral [Recovering/Resolving]
  - Intraocular pressure increased [Unknown]
  - Eye irritation [Recovered/Resolved]
  - Eye pruritus [Recovered/Resolved]
  - Headache [Recovered/Resolved]

NARRATIVE: CASE EVENT DATE: 20230423
